FAERS Safety Report 7227797-X (Version None)
Quarter: 2011Q1

REPORT INFORMATION
  Report Type: 
  Country: None (occurrence: None)
  Receive Date: 20110111
  Receipt Date: 20110111
  Transmission Date: 20110831
  Serious: Yes (Hospitalization)
  Sender: FDA-Public Use
  Company Number: None

PATIENT
  Sex: Male
  Weight: 60.782 kg

DRUGS (1)
  1. SUTENT [Suspect]

REACTIONS (15)
  - DIZZINESS [None]
  - DYSSTASIA [None]
  - TOXICOLOGIC TEST ABNORMAL [None]
  - BLOOD CREATININE INCREASED [None]
  - MENTAL STATUS CHANGES [None]
  - BLOOD BILIRUBIN INCREASED [None]
  - DYSARTHRIA [None]
  - BLOOD LACTATE DEHYDROGENASE INCREASED [None]
  - LIVER INJURY [None]
  - BLOOD CREATINE PHOSPHOKINASE INCREASED [None]
  - ALANINE AMINOTRANSFERASE INCREASED [None]
  - INTERNATIONAL NORMALISED RATIO INCREASED [None]
  - CONFUSIONAL STATE [None]
  - ASPARTATE AMINOTRANSFERASE INCREASED [None]
  - EJECTION FRACTION DECREASED [None]
